FAERS Safety Report 6525031-7 (Version None)
Quarter: 2010Q1

REPORT INFORMATION
  Report Type: 
  Country: None (occurrence: None)
  Receive Date: 20100104
  Receipt Date: 20091221
  Transmission Date: 20100710
  Serious: Yes (Other)
  Sender: FDA-Public Use
  Company Number: US-PFIZER INC-2009313854

PATIENT
  Sex: Female
  Weight: 81.633 kg

DRUGS (9)
  1. LIPITOR [Suspect]
     Indication: BLOOD CHOLESTEROL INCREASED
     Dosage: 10 MG, 1X/DAY
     Dates: end: 20070901
  2. MORPHINE [Suspect]
     Indication: BACK PAIN
     Dates: start: 20090101, end: 20090101
  3. VICODIN [Suspect]
     Indication: BACK PAIN
     Dosage: UNK
     Dates: start: 20090101, end: 20090101
  4. TRAMADOL [Suspect]
     Indication: PAIN
     Dates: start: 20090101, end: 20090101
  5. FENOFIBRATE [Suspect]
     Indication: BLOOD CHOLESTEROL
     Dosage: UNK
     Dates: start: 20090101
  6. LASIX [Concomitant]
     Dosage: UNK
  7. SYNTHROID [Concomitant]
     Dosage: UNK
  8. METFORMIN [Concomitant]
     Indication: DIABETES MELLITUS
     Dosage: UNK
  9. METOPROLOL [Concomitant]
     Dosage: UNK

REACTIONS (11)
  - ABDOMINAL PAIN [None]
  - ARTHROPATHY [None]
  - BLOOD CHOLESTEROL [None]
  - DRUG WITHDRAWAL SYNDROME [None]
  - FALL [None]
  - GASTRIC DISORDER [None]
  - INTERVERTEBRAL DISC PROTRUSION [None]
  - KNEE ARTHROPLASTY [None]
  - MUSCLE SPASMS [None]
  - MUSCLE STRAIN [None]
  - PAIN IN EXTREMITY [None]
